FAERS Safety Report 24963845 (Version 1)
Quarter: 2025Q1

REPORT INFORMATION
  Report Type: Spontaneous
  Country: US (occurrence: US)
  Receive Date: 20250213
  Receipt Date: 20250213
  Transmission Date: 20250408
  Serious: No
  Sender: AMGEN
  Company Number: US-AMGEN-USASP2025025209

PATIENT
  Age: 72 Year
  Sex: Female

DRUGS (2)
  1. PROLIA [Suspect]
     Active Substance: DENOSUMAB
     Indication: Osteoporosis
     Route: 065
     Dates: start: 20241210
  2. RITUXIMAB [Concomitant]
     Active Substance: RITUXIMAB
     Indication: Autoimmune disorder
     Route: 051

REACTIONS (5)
  - Restless legs syndrome [Unknown]
  - Nail disorder [Unknown]
  - Myalgia [Unknown]
  - Musculoskeletal stiffness [Not Recovered/Not Resolved]
  - Hair growth abnormal [Unknown]
